FAERS Safety Report 8422980-X (Version None)
Quarter: 2012Q2

REPORT INFORMATION
  Report Type: 
  Country: None (occurrence: None)
  Receive Date: 20120608
  Receipt Date: 20120530
  Transmission Date: 20120825
  Serious: Yes (Hospitalization, Other)
  Sender: FDA-Public Use
  Company Number: GB-TEVA-340218ISR

PATIENT
  Age: 40 Year
  Sex: Female
  Weight: 62 kg

DRUGS (3)
  1. TERBINAFINE HCL [Suspect]
     Indication: ONYCHOMYCOSIS
     Dosage: 250 MILLIGRAM;
     Route: 048
     Dates: start: 20120308, end: 20120412
  2. LEVOTHYROXINE SODIUM [Concomitant]
     Indication: HYPOTHYROIDISM
     Dosage: ONGOING
     Route: 048
     Dates: start: 20101201
  3. KLIOVANCE [Concomitant]
     Indication: HORMONE REPLACEMENT THERAPY
     Dosage: ONGOING
     Route: 048
     Dates: start: 20111101

REACTIONS (5)
  - CHOLESTASIS [None]
  - PRURITUS [None]
  - BLOOD TEST ABNORMAL [None]
  - LIVER FUNCTION TEST ABNORMAL [None]
  - HEPATITIS [None]
